FAERS Safety Report 15524697 (Version 5)
Quarter: 2019Q1

REPORT INFORMATION
  Report Type: Spontaneous
  Country: US (occurrence: US)
  Receive Date: 20181018
  Receipt Date: 20190307
  Transmission Date: 20190417
  Serious: No
  Sender: FDA-Public Use
  Company Number: US-PFIZER INC-2018421128

PATIENT
  Age: 67 Year
  Sex: Female
  Weight: 94 kg

DRUGS (4)
  1. IBRANCE [Suspect]
     Active Substance: PALBOCICLIB
     Dosage: 100 MG, CYCLIC (FOR 21 DAYS)
     Dates: start: 201809, end: 201812
  2. FASLODEX [Concomitant]
     Active Substance: FULVESTRANT
     Indication: BREAST CANCER FEMALE
     Dosage: 500 MG, UNK  (500 MG INJECTED IN HER HIP, EVERY TWO WEEKS)
     Dates: start: 20180109
  3. IBRANCE [Suspect]
     Active Substance: PALBOCICLIB
     Indication: BREAST CANCER METASTATIC
     Dosage: 125 MG, 1X/DAY
     Route: 048
     Dates: end: 20181011
  4. IBRANCE [Suspect]
     Active Substance: PALBOCICLIB
     Dosage: 75 MG, UNK
     Dates: start: 2018, end: 2018

REACTIONS (8)
  - White blood cell count decreased [Not Recovered/Not Resolved]
  - Skin lesion [Unknown]
  - Musculoskeletal discomfort [Unknown]
  - Cough [Unknown]
  - Arthralgia [Unknown]
  - Asthenia [Unknown]
  - Hot flush [Unknown]
  - Fatigue [Unknown]

NARRATIVE: CASE EVENT DATE: 2018
